FAERS Safety Report 20907585 (Version 2)
Quarter: 2022Q2

REPORT INFORMATION
  Report Type: Report from Study
  Country: US (occurrence: None)
  Receive Date: 20220602
  Receipt Date: 20220609
  Transmission Date: 20220721
  Serious: Yes (Hospitalization)
  Sender: FDA-Public Use
  Company Number: US-Merck Healthcare KGaA-9325675

PATIENT
  Age: 41 Year
  Sex: Female

DRUGS (2)
  1. MAVENCLAD [Suspect]
     Active Substance: CLADRIBINE
     Indication: Multiple sclerosis
     Dosage: YEAR ONE MONTH ONE THERAPY
     Route: 048
     Dates: start: 20210614
  2. MAVENCLAD [Suspect]
     Active Substance: CLADRIBINE
     Dosage: YEAR ONE MONTH TWO THERAPY
     Route: 048
     Dates: start: 20210714

REACTIONS (9)
  - Spinal fusion surgery [Unknown]
  - Multiple sclerosis [Recovering/Resolving]
  - Neck pain [Unknown]
  - Procedural pain [Unknown]
  - Posture abnormal [Recovering/Resolving]
  - Fall [Unknown]
  - Hand fracture [Unknown]
  - Feeling cold [Recovered/Resolved]
  - Ligament sprain [Unknown]

NARRATIVE: CASE EVENT DATE: 20211129
